FAERS Safety Report 10288857 (Version 2)
Quarter: 2014Q3

REPORT INFORMATION
  Report Type: Spontaneous
  Country: JP (occurrence: JP)
  Receive Date: 20140709
  Receipt Date: 20140730
  Transmission Date: 20150326
  Serious: Yes (Other)
  Sender: FDA-Public Use
  Company Number: JP-TEVA-493512USA

PATIENT
  Age: 14 Year
  Sex: Male
  Weight: 52.2 kg

DRUGS (6)
  1. HOKUNALIN [Concomitant]
     Active Substance: TULOBUTEROL
     Indication: ASTHMA
     Dosage: 2 MILLIGRAM DAILY;
     Route: 061
     Dates: start: 20120215, end: 20120222
  2. ZINC [Suspect]
     Active Substance: ZINC\ZINC CHLORIDE
     Dosage: 75 MILLIGRAM DAILY;
     Route: 048
     Dates: start: 20120104, end: 20120214
  3. METALITE [Concomitant]
     Indication: HEPATO-LENTICULAR DEGENERATION
     Dosage: 1500 MILLIGRAM DAILY;
     Route: 048
     Dates: start: 20120104, end: 20120214
  4. ZINC [Suspect]
     Active Substance: ZINC\ZINC CHLORIDE
     Dosage: 150 MILLIGRAM DAILY;
     Route: 048
     Dates: start: 20120215, end: 20121225
  5. ZINC [Suspect]
     Active Substance: ZINC\ZINC CHLORIDE
     Indication: HEPATO-LENTICULAR DEGENERATION
     Dosage: 50 MILLIGRAM DAILY;
     Route: 048
     Dates: start: 20081029
  6. MUCODYNE [Concomitant]
     Active Substance: CARBOCYSTEINE
     Indication: ASTHMA
     Dosage: 1500 MILLIGRAM DAILY;
     Route: 048
     Dates: start: 20120215, end: 20120222

REACTIONS (1)
  - Loss of consciousness [Recovered/Resolved]

NARRATIVE: CASE EVENT DATE: 20120526
